FAERS Safety Report 9717140 (Version 5)
Quarter: 2014Q2

REPORT INFORMATION
  Report Type: Spontaneous
  Country: US (occurrence: US)
  Receive Date: 20131127
  Receipt Date: 20140627
  Transmission Date: 20141212
  Serious: Yes (Other)
  Sender: FDA-Public Use
  Company Number: US-PFIZER INC-2013338290

PATIENT
  Age: 58 Year
  Sex: Female
  Weight: 85.26 kg

DRUGS (6)
  1. LYRICA [Suspect]
     Indication: FIBROMYALGIA
     Dosage: 150 MG, 2X/DAY
     Dates: start: 201002
  2. LYRICA [Suspect]
     Dosage: 75 MG, 1X/DAY
     Route: 048
     Dates: start: 20100707
  3. PREDNISONE [Concomitant]
     Dosage: 5 MG, DAILY
  4. HYDROCODONE [Concomitant]
     Dosage: 5/325, UNK
  5. SUDAFED [Concomitant]
     Dosage: UNK
  6. VITAMIN D [Concomitant]

REACTIONS (1)
  - Breast cancer [Unknown]
